FAERS Safety Report 10874438 (Version 1)
Quarter: 2015Q1

REPORT INFORMATION
  Report Type: Spontaneous
  Country: US (occurrence: None)
  Receive Date: 20150223
  Receipt Date: 20150223
  Transmission Date: 20150721
  Serious: No
  Sender: FDA-Public Use
  Company Number: None

PATIENT
  Age: 57 Year
  Sex: Female
  Weight: 67.13 kg

DRUGS (16)
  1. EPIVIR [Concomitant]
     Active Substance: LAMIVUDINE
  2. VITAMIN C [Concomitant]
     Active Substance: ASCORBIC ACID
  3. ORENCIA [Suspect]
     Active Substance: ABATACEPT
     Indication: RHEUMATOID ARTHRITIS
     Dosage: GIVEN INTO/UNDER THE SKIN
     Dates: start: 20150124, end: 20150220
  4. ORENCIA [Concomitant]
     Active Substance: ABATACEPT
  5. FOSAMAX [Concomitant]
     Active Substance: ALENDRONATE SODIUM
  6. ALEVE [Concomitant]
     Active Substance: NAPROXEN SODIUM
  7. URSO FORTE [Concomitant]
     Active Substance: URSODIOL
  8. VITAMIN B [Concomitant]
     Active Substance: VITAMIN B
  9. CALCIUM [Concomitant]
     Active Substance: CALCIUM
  10. MILK THISTLE [Concomitant]
     Active Substance: MILK THISTLE
  11. PREDNISONE. [Concomitant]
     Active Substance: PREDNISONE
  12. CINNAMON. [Concomitant]
     Active Substance: CINNAMON
  13. ATENOLOL. [Concomitant]
     Active Substance: ATENOLOL
  14. VITAMIN D [Concomitant]
     Active Substance: CHOLECALCIFEROL
  15. TURMERIC [Concomitant]
     Active Substance: TURMERIC
  16. ADVIL [Concomitant]
     Active Substance: IBUPROFEN

REACTIONS (1)
  - Dizziness [None]

NARRATIVE: CASE EVENT DATE: 20150201
